FAERS Safety Report 9535327 (Version 2)
Quarter: 2013Q4

REPORT INFORMATION
  Report Type: Spontaneous
  Country: US (occurrence: US)
  Receive Date: 20130918
  Receipt Date: 20131003
  Transmission Date: 20140711
  Serious: Yes (Hospitalization, Other)
  Sender: FDA-Public Use
  Company Number: US-PFIZER INC-2013268252

PATIENT
  Age: 59 Year
  Sex: Male
  Weight: 122 kg

DRUGS (13)
  1. LITHIUM CARBONATE [Suspect]
     Dosage: UNK
     Dates: end: 2012
  2. MORPHINE SULFATE [Suspect]
     Indication: PAIN IN EXTREMITY
     Dosage: UNK
  3. LYRICA [Suspect]
     Indication: PAIN
     Dosage: 200 MG, 3X/DAY
     Dates: start: 201206
  4. LYRICA [Suspect]
     Indication: PAIN IN EXTREMITY
  5. LYRICA [Suspect]
     Indication: PAIN IN EXTREMITY
  6. PRIMIDONE [Concomitant]
     Indication: TREMOR
  7. IMMUNOGLOBULINS [Concomitant]
     Indication: DEMYELINATING POLYNEUROPATHY
  8. NEXIUM [Concomitant]
     Indication: BARRETT^S OESOPHAGUS
     Dosage: 40 MG, 2X/DAY
  9. PRISTIQ [Concomitant]
     Indication: DEPRESSION
     Dosage: 50 MG, 1X/DAY
  10. PRAVASTATIN [Concomitant]
     Indication: BLOOD CHOLESTEROL ABNORMAL
     Dosage: 80 MG (40MG X 2), 1X/DAY
  11. CENTRUM SILVER [Concomitant]
     Indication: VITAMIN SUPPLEMENTATION
     Dosage: UNK
  12. FISH OIL [Concomitant]
     Dosage: UNK
  13. CODEINE [Concomitant]
     Indication: PAIN IN EXTREMITY
     Dosage: UNK
     Dates: end: 201204

REACTIONS (7)
  - Brain oedema [Unknown]
  - Renal failure acute [Recovered/Resolved]
  - Antipsychotic drug level increased [Unknown]
  - Loss of consciousness [Unknown]
  - Fall [Unknown]
  - Concussion [Unknown]
  - Eye contusion [Recovered/Resolved]
